FAERS Safety Report 5623657-6 (Version None)
Quarter: 2008Q1

REPORT INFORMATION
  Report Type: 
  Country: None (occurrence: None)
  Receive Date: 20080212
  Receipt Date: 20080201
  Transmission Date: 20080703
  Serious: Yes (Other)
  Sender: FDA-Public Use
  Company Number: US-PFIZER INC-2008012216

PATIENT
  Sex: Female

DRUGS (2)
  1. GLYSET [Suspect]
     Dates: start: 20080123, end: 20080125
  2. PRANDIN [Concomitant]

REACTIONS (6)
  - DYSPEPSIA [None]
  - FEELING ABNORMAL [None]
  - FLATULENCE [None]
  - HYPERSENSITIVITY [None]
  - PRURITUS [None]
  - RASH [None]
